FAERS Safety Report 8143486-1 (Version None)
Quarter: 2012Q1

REPORT INFORMATION
  Report Type: 
  Country: None (occurrence: None)
  Receive Date: 20120217
  Receipt Date: 20120203
  Transmission Date: 20120608
  Serious: Yes (Other)
  Sender: FDA-Public Use
  Company Number: FR-RANBAXY-2011RR-51120

PATIENT
  Sex: Female
  Weight: 1.7 kg

DRUGS (2)
  1. ACETYLCYSTEINE [Concomitant]
     Route: 064
  2. ACETAMINOPHEN [Suspect]
     Dosage: 24 G, SINGLE
     Route: 064

REACTIONS (3)
  - PREMATURE BABY [None]
  - RESPIRATORY DISTRESS [None]
  - FOETAL EXPOSURE DURING PREGNANCY [None]
